FAERS Safety Report 4861309-0 (Version None)
Quarter: 2005Q4

REPORT INFORMATION
  Report Type: 
  Country: None (occurrence: None)
  Receive Date: 20051220
  Receipt Date: 20051208
  Transmission Date: 20060501
  Serious: Yes (Hospitalization, Disabling)
  Sender: FDA-Public Use
  Company Number: MY-MERCK-0512MYS00005

PATIENT
  Age: 46 Year
  Sex: Male
  Weight: 65 kg

DRUGS (5)
  1. PROPECIA [Suspect]
     Indication: MALE PATTERN BALDNESS
     Route: 048
     Dates: start: 20030101, end: 20051208
  2. YEAST [Suspect]
     Route: 048
     Dates: end: 20051205
  3. GINKGO BILOBA EXTRACT [Suspect]
     Route: 048
     Dates: end: 20051205
  4. ASCORBIC ACID [Concomitant]
     Route: 048
  5. OMEGA-3 MARINE TRIGLYCERIDES [Concomitant]
     Route: 048

REACTIONS (3)
  - APPENDICITIS [None]
  - DEEP VEIN THROMBOSIS [None]
  - INTESTINAL OBSTRUCTION [None]
